FAERS Safety Report 9121068 (Version 1)
Quarter: 2013Q1

REPORT INFORMATION
  Report Type: Spontaneous
  Country: US (occurrence: US)
  Receive Date: 20130226
  Receipt Date: 20130226
  Transmission Date: 20140127
  Serious: Yes (Other)
  Sender: FDA-Public Use
  Company Number: US-UCBSA-078874

PATIENT
  Age: 32 Year
  Sex: Male

DRUGS (1)
  1. CIMZIA [Suspect]
     Indication: CROHN^S DISEASE
     Dates: start: 2009, end: 201211

REACTIONS (1)
  - Ileostomy [Not Recovered/Not Resolved]
